FAERS Safety Report 9907089 (Version 2)
Quarter: 2014Q2

REPORT INFORMATION
  Report Type: Spontaneous
  Country: US (occurrence: US)
  Receive Date: 20140218
  Receipt Date: 20140403
  Transmission Date: 20141212
  Serious: Yes (Hospitalization)
  Sender: FDA-Public Use
  Company Number: US-B.I. PHARMACEUTICALS,INC./RIDGEFIELD-2014-BI-06773BP

PATIENT
  Sex: Female
  Weight: 59.87 kg

DRUGS (6)
  1. PRADAXA [Suspect]
     Indication: ATRIAL FIBRILLATION
     Route: 065
     Dates: start: 201101, end: 201102
  2. SERTRALINE [Concomitant]
     Route: 065
     Dates: start: 2009
  3. ATENOLOL [Concomitant]
     Route: 065
     Dates: start: 1982
  4. PREMARIN CREAM [Concomitant]
     Route: 065
     Dates: start: 1982
  5. TYLENOL [Concomitant]
     Route: 065
  6. VITAMIN FOR EYES [Concomitant]
     Route: 065

REACTIONS (2)
  - Gastrointestinal haemorrhage [Unknown]
  - Myocardial infarction [Unknown]
